FAERS Safety Report 14913438 (Version 1)
Quarter: 2018Q2

REPORT INFORMATION
  Report Type: Spontaneous
  Country: GB (occurrence: GB)
  Receive Date: 20180518
  Receipt Date: 20180518
  Transmission Date: 20180711
  Serious: Yes (Other)
  Sender: FDA-Public Use
  Company Number: GB-BIOGEN-2018BI00578291

PATIENT

DRUGS (1)
  1. TECFIDERA [Suspect]
     Active Substance: DIMETHYL FUMARATE
     Indication: PRODUCT USED FOR UNKNOWN INDICATION
     Dosage: LOW DOSE
     Route: 065

REACTIONS (7)
  - Glossodynia [Unknown]
  - Chest discomfort [Unknown]
  - Fatigue [Unknown]
  - Swollen tongue [Unknown]
  - Feeling abnormal [Unknown]
  - Tongue discomfort [Unknown]
  - Dyspnoea [Unknown]
